FAERS Safety Report 5097430-4 (Version None)
Quarter: 2006Q3

REPORT INFORMATION
  Report Type: 
  Country: None (occurrence: None)
  Receive Date: 20060901
  Receipt Date: 20060817
  Transmission Date: 20061208
  Serious: Yes (Death, Hospitalization)
  Sender: FDA-Public Use
  Company Number: 2006S1006176

PATIENT
  Age: 77 Year
  Sex: Female

DRUGS (5)
  1. CLOZAPINE [Suspect]
     Dosage: 100 MG; HS; PO
     Route: 048
  2. ZYPREXA [Concomitant]
  3. DEPAKOTE [Concomitant]
  4. HALDOL SOLUTAB [Concomitant]
  5. RESTORIL [Concomitant]

REACTIONS (6)
  - CONDITION AGGRAVATED [None]
  - DIET REFUSAL [None]
  - MALNUTRITION [None]
  - PSYCHOTIC DISORDER [None]
  - REFUSAL OF TREATMENT BY PATIENT [None]
  - TREATMENT NONCOMPLIANCE [None]
